FAERS Safety Report 6286826-0 (Version None)
Quarter: 2009Q3

REPORT INFORMATION
  Report Type: 
  Country: None (occurrence: None)
  Receive Date: 20090727
  Receipt Date: 20090727
  Transmission Date: 20100115
  Serious: Yes (Hospitalization)
  Sender: FDA-Public Use
  Company Number: None

PATIENT
  Age: 43 Year
  Sex: Female
  Weight: 45.3597 kg

DRUGS (2)
  1. DOXORUBICIN HCL [Suspect]
     Indication: BREAST CANCER
     Dosage: 86 MG Q 2 WKS X 4 CYCLES IV
     Route: 042
     Dates: start: 20090702
  2. CYCLOPHOSPHAMIDE [Suspect]
     Indication: BREAST CANCER
     Dosage: 859 MG Q 2 WKS X 4 CYCLES IV
     Route: 042
     Dates: start: 20090702

REACTIONS (6)
  - BLOOD POTASSIUM DECREASED [None]
  - FATIGUE [None]
  - HAEMORRHOIDS [None]
  - NEUTROPENIA [None]
  - PAIN [None]
  - PYREXIA [None]
